FAERS Safety Report 22061890 (Version 1)
Quarter: 2023Q1

REPORT INFORMATION
  Report Type: Spontaneous
  Country: CN (occurrence: CN)
  Receive Date: 20230304
  Receipt Date: 20230304
  Transmission Date: 20230417
  Serious: Yes (Other)
  Sender: FDA-Public Use
  Company Number: CN-AMGEN-CHNSP2023035647

PATIENT
  Age: 16 Year
  Sex: Male

DRUGS (4)
  1. XGEVA [Suspect]
     Active Substance: DENOSUMAB
     Indication: Metastases to bone
     Dosage: 120 MILLIGRAM, QMO (ONCE ON THE IST, 8TH, AND 15TH DAYS OF THE FIRST TIME, AND ONCE EVERY MONTH)
     Route: 065
  2. CISPLATIN [Concomitant]
     Active Substance: CISPLATIN
     Indication: Metastases to bone
     Dosage: 120 MILLIGRAM/M2 (DAY 1)
     Route: 065
  3. DOXORUBICIN [Concomitant]
     Active Substance: DOXORUBICIN
     Indication: Metastases to bone
     Dosage: 30 MILLIGRAM/M2 (3 DAYS)
     Route: 065
  4. IFOSFAMIDE [Concomitant]
     Active Substance: IFOSFAMIDE
     Indication: Metastases to bone
     Dosage: 2 GRAM/M3 (5 DAYS, 1 COURSE FOR 2 WEEKS)
     Route: 065

REACTIONS (4)
  - Myelosuppression [Recovered/Resolved]
  - Vomiting [Recovered/Resolved]
  - Nausea [Recovered/Resolved]
  - Alopecia [Recovered/Resolved]
